FAERS Safety Report 15192009 (Version 1)
Quarter: 2018Q3

REPORT INFORMATION
  Report Type: Spontaneous
  Country: IT (occurrence: IT)
  Receive Date: 20180724
  Receipt Date: 20180724
  Transmission Date: 20181010
  Serious: Yes (Other)
  Sender: FDA-Public Use
  Company Number: PHHY2018IT049814

PATIENT
  Age: 63 Year
  Sex: Male

DRUGS (6)
  1. TELMISARTAN. [Suspect]
     Active Substance: TELMISARTAN
     Indication: HYPERTENSION
     Dosage: 1 DF (UG/LITRE), QD
     Route: 048
     Dates: start: 20180405
  2. ABASAGLAR [Concomitant]
     Active Substance: INSULIN GLARGINE
     Indication: DIABETES MELLITUS
     Dosage: 26 DF (UG/LITRE), UNK (SOLUTION FOR INJECTION IN A PREFILLED PEN)
     Route: 058
  3. METOPROLOL. [Concomitant]
     Active Substance: METOPROLOL
     Indication: HYPERTENSION
     Dosage: 1 DF (UG/LITRE), UNK
     Route: 048
  4. NOVORAPID [Concomitant]
     Active Substance: INSULIN ASPART
     Indication: DIABETES MELLITUS
     Dosage: 20 DF (UG/LITRE), UNK (SOLUTION FOR INJECTION IN A PREFILLED PE)
     Route: 058
  5. TELMISARTAN. [Suspect]
     Active Substance: TELMISARTAN
     Dosage: 1 DF (UG/LITRE), QD
     Route: 048
     Dates: start: 20180414
  6. TORVAST [Concomitant]
     Active Substance: ATORVASTATIN
     Indication: HYPERCHOLESTEROLAEMIA
     Dosage: 1 DF (UG/LITRE), UNK
     Route: 048

REACTIONS (1)
  - Lip oedema [Recovered/Resolved]

NARRATIVE: CASE EVENT DATE: 20180414
